FAERS Safety Report 7039826-7 (Version None)
Quarter: 2010Q4

REPORT INFORMATION
  Report Type: 
  Country: None (occurrence: None)
  Receive Date: 20101012
  Receipt Date: 20101011
  Transmission Date: 20110411
  Serious: Yes (Hospitalization)
  Sender: FDA-Public Use
  Company Number: US-BRISTOL-MYERS SQUIBB COMPANY-15304330

PATIENT
  Age: 64 Year
  Sex: Male
  Weight: 60 kg

DRUGS (6)
  1. ERBITUX [Suspect]
     Indication: NON-SMALL CELL LUNG CANCER
     Dosage: 400MG/M2 DAY 1 250MG/M2 DAY 8; LAST DOSE: 14-SEP-2010
     Dates: start: 20100621
  2. CARBOPLATIN [Suspect]
     Indication: NON-SMALL CELL LUNG CANCER
     Dosage: AUC 2 AND AUC 6;LAST DOSE: 14-SEP-2010
     Dates: start: 20100621
  3. TAXOL [Suspect]
     Indication: NON-SMALL CELL LUNG CANCER
     Dosage: 45MG/M2 AND 200MG/M2;LAST DOSE: 14-SEP-2010
     Dates: start: 20100621
  4. RADIATION THERAPY [Suspect]
     Indication: NON-SMALL CELL LUNG CANCER
     Dosage: 1 DF: 74 GY; NO.OF FRACTIONS: 37; ELAPSED DAYS: 52
     Dates: end: 20100818
  5. DECADRON [Concomitant]
  6. ZOFRAN [Concomitant]
     Route: 042

REACTIONS (8)
  - DECREASED APPETITE [None]
  - DYSPHAGIA [None]
  - FATIGUE [None]
  - GASTRIC ULCER [None]
  - NAUSEA [None]
  - OESOPHAGITIS [None]
  - STOMATITIS [None]
  - VOMITING [None]
